FAERS Safety Report 7586196-1 (Version None)
Quarter: 2011Q3

REPORT INFORMATION
  Report Type: 
  Country: None (occurrence: None)
  Receive Date: 20110701
  Receipt Date: 20110629
  Transmission Date: 20111222
  Serious: Yes (Other)
  Sender: FDA-Public Use
  Company Number: US-SANOFI-AVENTIS-2011SA037511

PATIENT
  Age: 75 Year
  Sex: Male
  Weight: 86.18 kg

DRUGS (8)
  1. MULTAQ [Suspect]
     Indication: ATRIAL FIBRILLATION
     Route: 048
     Dates: start: 20110510, end: 20110521
  2. LOSARTAN POTASSIUM [Concomitant]
     Indication: HYPERTENSION
     Dates: start: 20110301
  3. DIGOXIN [Concomitant]
     Indication: ATRIAL FIBRILLATION
     Dates: start: 20101201
  4. DILTIAZEM [Concomitant]
  5. DIGOXIN [Concomitant]
     Indication: HYPERTENSION
     Dates: start: 20101201
  6. DABIGATRAN ETEXILATE [Concomitant]
     Indication: ATRIAL FIBRILLATION
     Dates: start: 20110201
  7. MULTAQ [Suspect]
     Indication: HYPERTENSION
     Route: 048
     Dates: start: 20110510, end: 20110521
  8. LOSARTAN POTASSIUM [Concomitant]
     Indication: ATRIAL FIBRILLATION
     Dates: start: 20110301

REACTIONS (3)
  - ATRIAL FIBRILLATION [None]
  - INSOMNIA [None]
  - TACHYPHRENIA [None]
